FAERS Safety Report 4909155-3 (Version None)
Quarter: 2006Q1

REPORT INFORMATION
  Report Type: 
  Country: None (occurrence: None)
  Receive Date: 20060208
  Receipt Date: 20060131
  Transmission Date: 20060701
  Serious: Yes (Hospitalization)
  Sender: FDA-Public Use
  Company Number: 221646

PATIENT
  Age: 74 Year
  Sex: Female
  Weight: 69.8 kg

DRUGS (5)
  1. AVASTIN [Suspect]
     Indication: BREAST CANCER METASTATIC
     Dosage: 1064 MG, Q3W; INTRAVENOUS
     Route: 042
     Dates: start: 20050817, end: 20060106
  2. TAXOTERE [Suspect]
     Indication: BREAST CANCER METASTATIC
     Dosage: 130 MG, Q3W; INTRAVENOUS
     Route: 042
     Dates: start: 20050526, end: 20060106
  3. LEVAQUIN [Concomitant]
  4. AUGMENTIN (AMOXICILLIN, CLAVULANATE SODIUM) [Concomitant]
  5. PAXIL [Concomitant]

REACTIONS (3)
  - ACUTE RESPIRATORY FAILURE [None]
  - PLEURAL EFFUSION [None]
  - PNEUMONIA [None]
